FAERS Safety Report 10007421 (Version 1)
Quarter: 2014Q1

REPORT INFORMATION
  Report Type: Spontaneous
  Country: PL (occurrence: PL)
  Receive Date: 20140313
  Receipt Date: 20140313
  Transmission Date: 20141002
  Serious: Yes (Life-Threatening, Hospitalization)
  Sender: FDA-Public Use
  Company Number: PL-GLAXOSMITHKLINE-B0976296A

PATIENT
  Age: 43 Year
  Sex: Male
  Weight: 99 kg

DRUGS (1)
  1. ZINACEF [Suspect]
     Indication: BRONCHITIS
     Dosage: 1.5G PER DAY
     Route: 042
     Dates: start: 20131022, end: 20131022

REACTIONS (1)
  - Anaphylactic shock [Unknown]
